FAERS Safety Report 10766648 (Version 1)
Quarter: 2015Q1

REPORT INFORMATION
  Report Type: Report from Study
  Country: ES (occurrence: ES)
  Receive Date: 20150205
  Receipt Date: 20150205
  Transmission Date: 20150721
  Serious: Yes (Hospitalization)
  Sender: FDA-Public Use
  Company Number: ES-ROCHE-1533445

PATIENT
  Age: 78 Year
  Sex: Male

DRUGS (18)
  1. RILAST [Concomitant]
     Active Substance: BUDESONIDE\FORMOTEROL
  2. IPRATROPIUM [Concomitant]
     Active Substance: IPRATROPIUM
  3. RANIBIZUMAB [Suspect]
     Active Substance: RANIBIZUMAB
     Dosage: MOST RECENT DOSE PRIOR TO SAE ON 02/OCT/2014
     Route: 050
     Dates: start: 20141218
  4. OMEPRAZOL [Concomitant]
     Active Substance: OMEPRAZOLE
  5. ADIRO [Concomitant]
     Active Substance: ASPIRIN
  6. PARACETAMOL [Concomitant]
     Active Substance: ACETAMINOPHEN
  7. RANIBIZUMAB [Suspect]
     Active Substance: RANIBIZUMAB
     Indication: AGE-RELATED MACULAR DEGENERATION
     Dosage: MOST RECENT DOSE PRIOR TO SAE ON 02/OCT/2014
     Route: 050
     Dates: start: 20140213
  8. PREDNISONE. [Concomitant]
     Active Substance: PREDNISONE
  9. AMLODIPINE [Concomitant]
     Active Substance: AMLODIPINE BESYLATE
  10. RANIBIZUMAB [Suspect]
     Active Substance: RANIBIZUMAB
     Dosage: MOST RECENT DOSE PRIOR TO SAE ON 02/OCT/2014
     Route: 050
     Dates: start: 20141002, end: 20141002
  11. ALLOPURINOL. [Concomitant]
     Active Substance: ALLOPURINOL
     Route: 065
  12. ISOSORBIDE MONONITRATE. [Concomitant]
     Active Substance: ISOSORBIDE MONONITRATE
  13. SITAGLIPTIN PHOSPHATE [Concomitant]
     Active Substance: SITAGLIPTIN PHOSPHATE
  14. ATORVASTATINA [Concomitant]
     Active Substance: ATORVASTATIN
  15. FUROSEMIDE. [Concomitant]
     Active Substance: FUROSEMIDE
  16. DUODART [Concomitant]
     Active Substance: DUTASTERIDE\TAMSULOSIN
  17. CORLENTOR [Concomitant]
     Active Substance: IVABRADINE HYDROCHLORIDE
  18. METFORMIN [Concomitant]
     Active Substance: METFORMIN HYDROCHLORIDE

REACTIONS (1)
  - Angina pectoris [Recovered/Resolved]

NARRATIVE: CASE EVENT DATE: 20141121
